APPROVED DRUG PRODUCT: LENALIDOMIDE
Active Ingredient: LENALIDOMIDE
Strength: 5MG
Dosage Form/Route: CAPSULE;ORAL
Application: A209348 | Product #003 | TE Code: AB
Applicant: DR REDDYS LABORATORIES LTD
Approved: Aug 30, 2022 | RLD: No | RS: No | Type: RX